FAERS Safety Report 10511885 (Version 1)
Quarter: 2014Q3

REPORT INFORMATION
  Report Type: Spontaneous
  Country: US (occurrence: None)
  Receive Date: 20140926
  Receipt Date: 20140926
  Transmission Date: 20150326
  Serious: No
  Sender: FDA-Public Use
  Company Number: 1000068303

PATIENT
  Age: 51 Year
  Sex: Female

DRUGS (1)
  1. LINZESS [Suspect]
     Active Substance: LINACLOTIDE
     Indication: CONSTIPATION
     Dosage: 290 MCG (290 MCG, 1 IN 1 D), ORAL
     Route: 048
     Dates: start: 201405

REACTIONS (4)
  - Epistaxis [None]
  - Chest pain [None]
  - Pruritus [None]
  - Local swelling [None]

NARRATIVE: CASE EVENT DATE: 20140616
